FAERS Safety Report 15673910 (Version 2)
Quarter: 2020Q1

REPORT INFORMATION
  Report Type: Spontaneous
  Country: IL (occurrence: IL)
  Receive Date: 20181129
  Receipt Date: 20200316
  Transmission Date: 20200409
  Serious: Yes (Other)
  Sender: FDA-Public Use
  Company Number: IL-BIOMARINAP-IL-2018-120965

PATIENT
  Age: 15 Month
  Sex: Female

DRUGS (2)
  1. ALDURAZYME [Suspect]
     Active Substance: LARONIDASE
     Dosage: 2000 INTERNATIONAL UNIT, QW
     Route: 065
     Dates: start: 201911
  2. ALDURAZYME [Suspect]
     Active Substance: LARONIDASE
     Indication: MUCOPOLYSACCHARIDOSIS I
     Dosage: 10 DOSAGE FORM
     Route: 041
     Dates: start: 2018, end: 201905

REACTIONS (2)
  - Blood bilirubin increased [Unknown]
  - Deafness [Not Recovered/Not Resolved]
